FAERS Safety Report 17757709 (Version 1)
Quarter: 2020Q2

REPORT INFORMATION
  Report Type: Report from Study
  Country: IT (occurrence: IT)
  Receive Date: 20200507
  Receipt Date: 20200507
  Transmission Date: 20200714
  Serious: Yes (Hospitalization)
  Sender: FDA-Public Use
  Company Number: IT-OTSUKA-2020_011433

PATIENT
  Age: 65 Year
  Sex: Male
  Weight: 60 kg

DRUGS (1)
  1. DECITABINE. [Suspect]
     Active Substance: DECITABINE
     Indication: ACUTE MYELOID LEUKAEMIA
     Dosage: 33 MG (33 MG,1 IN 1 D)
     Route: 042
     Dates: start: 20200416

REACTIONS (2)
  - Pyrexia [Unknown]
  - Colitis [Unknown]

NARRATIVE: CASE EVENT DATE: 20200430
